FAERS Safety Report 5084379-6 (Version None)
Quarter: 2006Q3

REPORT INFORMATION
  Report Type: 
  Country: None (occurrence: None)
  Receive Date: 20060821
  Receipt Date: 20060809
  Transmission Date: 20061208
  Serious: Yes (Hospitalization, Other)
  Sender: FDA-Public Use
  Company Number: PHBS2006BR12234

PATIENT
  Age: 61 Year
  Sex: Female
  Weight: 56 kg

DRUGS (6)
  1. FORASEQ [Suspect]
     Indication: ASTHMA
     Dosage: UNK, Q12H
  2. CATAFLAM [Suspect]
     Indication: UPPER RESPIRATORY TRACT INFLAMMATION
     Dosage: 75 MG, ONCE/SINGLE
  3. VOLTAREN [Suspect]
     Indication: UPPER RESPIRATORY TRACT INFLAMMATION
     Dosage: 75 MG, ONCE/SINGLE
  4. AMOXICILLIN [Concomitant]
     Indication: INCREASED BRONCHIAL SECRETION
     Dosage: 500 MG, Q8H
     Route: 048
  5. BEROTEC [Concomitant]
     Indication: DYSPNOEA
  6. ATROVENT [Concomitant]

REACTIONS (6)
  - BRONCHOPNEUMONIA [None]
  - DYSPNOEA [None]
  - HYPERSENSITIVITY [None]
  - MALAISE [None]
  - SHOCK [None]
  - UPPER RESPIRATORY TRACT INFLAMMATION [None]
